FAERS Safety Report 10947080 (Version 2)
Quarter: 2015Q2

REPORT INFORMATION
  Report Type: Spontaneous
  Country: US (occurrence: US)
  Receive Date: 20150321
  Receipt Date: 20150525
  Transmission Date: 20150821
  Serious: No
  Sender: FDA-Public Use
  Company Number: US-JNJFOC-20140206680

PATIENT
  Age: 54 Year
  Sex: Female
  Weight: 58.97 kg

DRUGS (3)
  1. AXERT [Suspect]
     Active Substance: ALMOTRIPTAN MALATE
     Indication: MIGRAINE
     Route: 048
  2. TENORMIN [Concomitant]
     Active Substance: ATENOLOL
     Indication: MIGRAINE PROPHYLAXIS
     Route: 048
  3. TOPAMAX [Suspect]
     Active Substance: TOPIRAMATE
     Indication: MIGRAINE PROPHYLAXIS
     Route: 048

REACTIONS (1)
  - Migraine [Not Recovered/Not Resolved]
